FAERS Safety Report 4738202-7 (Version None)
Quarter: 2005Q3

REPORT INFORMATION
  Report Type: 
  Country: None (occurrence: None)
  Receive Date: 20050809
  Receipt Date: 20050614
  Transmission Date: 20060218
  Serious: Yes (Other)
  Sender: FDA-Public Use
  Company Number: PHBS2005JP08546

PATIENT
  Age: 65 Year
  Sex: Female
  Weight: 50 kg

DRUGS (7)
  1. AREDIA [Suspect]
     Indication: METASTASES TO BONE
     Dosage: 45 MG TWICE MONTHLY
     Route: 042
     Dates: start: 19150112, end: 20050607
  2. DEPAS [Concomitant]
     Dosage: 0.5 MG/D
     Route: 048
     Dates: start: 20050509
  3. ARIMIDEX [Concomitant]
     Dosage: 1 MG/D
     Route: 048
     Dates: start: 20021107, end: 20050704
  4. ASCOMARNA [Concomitant]
     Dosage: 0.25 MG/D
     Route: 048
     Dates: start: 20031203
  5. BETAMAC [Concomitant]
     Dosage: 150 MG/D
     Route: 048
     Dates: start: 20040923, end: 20050509
  6. PROMAC [Concomitant]
     Dosage: 150 MG/D
     Route: 048
     Dates: start: 20040923, end: 20050509
  7. HYSRON [Concomitant]
     Dosage: 600 MG/D
     Route: 048
     Dates: start: 20050509

REACTIONS (4)
  - ARTHRALGIA [None]
  - GINGIVAL PAIN [None]
  - OSTEOMYELITIS [None]
  - PAIN IN JAW [None]
